FAERS Safety Report 20805785 (Version 1)
Quarter: 2022Q2

REPORT INFORMATION
  Report Type: Spontaneous
  Country: US (occurrence: US)
  Receive Date: 20220510
  Receipt Date: 20220510
  Transmission Date: 20220721
  Serious: Yes (Hospitalization, Other)
  Sender: FDA-Public Use
  Company Number: US-APOTEX-2022AP007132

PATIENT
  Weight: 90.1 kg

DRUGS (8)
  1. GUANFACINE [Suspect]
     Active Substance: GUANFACINE
     Indication: Impulsive behaviour
     Dosage: 45 DOSAGE FORM, INTENTIONAL INGESTION OF 45 TABLETS
     Route: 048
  2. GUANFACINE [Suspect]
     Active Substance: GUANFACINE
     Dosage: 1 DOSAGE FORM, Q.H.S.
     Route: 048
  3. LORATADINE [Suspect]
     Active Substance: LORATADINE
     Indication: Product used for unknown indication
     Dosage: UNKNOWN QUANTITIES
     Route: 048
  4. MELATONIN [Suspect]
     Active Substance: MELATONIN
     Indication: Product used for unknown indication
     Dosage: UNKNOWN QUANTITIES
     Route: 048
  5. CITALOPRAM [Concomitant]
     Active Substance: CITALOPRAM HYDROBROMIDE
     Indication: Depression
     Dosage: 20 MILLIGRAM, QD
     Route: 065
  6. CITALOPRAM [Concomitant]
     Active Substance: CITALOPRAM HYDROBROMIDE
     Indication: Anxiety
  7. BUPROPION [Concomitant]
     Active Substance: BUPROPION
     Indication: Depression
     Dosage: 150 MILLIGRAM, QD
     Route: 065
  8. BUPROPION [Concomitant]
     Active Substance: BUPROPION
     Indication: Anxiety

REACTIONS (16)
  - Intentional overdose [Unknown]
  - Toxicity to various agents [Unknown]
  - Exposure via ingestion [Unknown]
  - Hypertension [Recovered/Resolved]
  - Hyperhidrosis [Recovered/Resolved]
  - Diplopia [Recovered/Resolved]
  - Dysarthria [Unknown]
  - Syncope [Recovered/Resolved]
  - Dizziness [Recovered/Resolved]
  - Nausea [Recovered/Resolved]
  - Lethargy [Recovered/Resolved]
  - Headache [Recovered/Resolved]
  - Hypotension [Recovered/Resolved]
  - Somnolence [Recovered/Resolved]
  - Dizziness postural [Recovered/Resolved]
  - Bradycardia [Recovered/Resolved]
